FAERS Safety Report 16539688 (Version 1)
Quarter: 2019Q3

REPORT INFORMATION
  Report Type: Spontaneous
  Country: US (occurrence: US)
  Receive Date: 20190708
  Receipt Date: 20190708
  Transmission Date: 20191004
  Serious: No
  Sender: FDA-Public Use
  Company Number: US-PFIZER INC-2018196235

PATIENT
  Age: 65 Year
  Sex: Female
  Weight: 86 kg

DRUGS (2)
  1. LYRICA [Suspect]
     Active Substance: PREGABALIN
     Dosage: 150 MG, 3X/DAY
     Route: 048
     Dates: start: 2019
  2. LYRICA [Suspect]
     Active Substance: PREGABALIN
     Indication: FIBROMYALGIA
     Dosage: UNK, 3X/DAY
     Dates: start: 20180406, end: 20190406

REACTIONS (5)
  - Fibromyalgia [Unknown]
  - Back disorder [Unknown]
  - Pain [Not Recovered/Not Resolved]
  - Mobility decreased [Unknown]
  - Withdrawal syndrome [Unknown]
